FAERS Safety Report 19304238 (Version 1)
Quarter: 2021Q2

REPORT INFORMATION
  Report Type: Spontaneous
  Country: US (occurrence: US)
  Receive Date: 20210525
  Receipt Date: 20210525
  Transmission Date: 20210717
  Serious: Yes (Other)
  Sender: FDA-Public Use
  Company Number: US-PFIZER INC-2020198676

PATIENT
  Age: 66 Year

DRUGS (2)
  1. DILANTIN [Suspect]
     Active Substance: PHENYTOIN
     Indication: SEIZURE
     Dosage: (I^M TAKING 400,ON ALTERNATE)
  2. DILANTIN [Suspect]
     Active Substance: PHENYTOIN
     Indication: ARTERIOVENOUS MALFORMATION
     Dosage: 300MG (3 CAPSULES) EVERY OTHER DAY, ALTERNATIVE WITH 400MG (4 CAPSULES)
     Route: 048

REACTIONS (4)
  - Paralysis [Unknown]
  - Off label use [Unknown]
  - Drug ineffective [Unknown]
  - Somnolence [Unknown]
